FAERS Safety Report 5007756-8 (Version None)
Quarter: 2006Q2

REPORT INFORMATION
  Report Type: 
  Country: None (occurrence: None)
  Receive Date: 20060518
  Receipt Date: 20060508
  Transmission Date: 20061013
  Serious: Yes (Death, Hospitalization)
  Sender: FDA-Public Use
  Company Number: US-2006-005092

PATIENT
  Age: 49 Year
  Sex: Female

DRUGS (8)
  1. BETASERON [Suspect]
     Indication: RELAPSING-REMITTING MULTIPLE SCLEROSIS
     Dosage: 8 MIU, EVERY 2D, SUBCUTANEOUS
     Route: 058
     Dates: start: 20010131, end: 20050101
  2. NOVANTRONE [Suspect]
     Indication: RELAPSING-REMITTING MULTIPLE SCLEROSIS
     Dosage: 100MG/M2 TOTAL DOSE
     Dates: start: 20010901, end: 20030101
  3. CLONAZEPAM [Concomitant]
  4. AMBIEN [Concomitant]
  5. HYDROCHLOROTHIAZIDE [Concomitant]
  6. ZOLOFT [Concomitant]
  7. ALLEGRA [Concomitant]
  8. TRAMADOL HCL [Concomitant]

REACTIONS (1)
  - ACUTE LEUKAEMIA [None]
